FAERS Safety Report 6981933-9 (Version None)
Quarter: 2010Q3

REPORT INFORMATION
  Report Type: 
  Country: None (occurrence: None)
  Receive Date: 20100914
  Receipt Date: 20091014
  Transmission Date: 20110219
  Serious: No
  Sender: FDA-Public Use
  Company Number: US-PFIZER INC-2009285015

PATIENT
  Sex: Female
  Weight: 53.5 kg

DRUGS (9)
  1. LYRICA [Suspect]
     Indication: HEADACHE
     Dosage: UNK
  2. RELPAX [Concomitant]
     Dosage: UNK
  3. SYNTHROID [Concomitant]
     Dosage: UNK
  4. ADVAIR DISKUS 100/50 [Concomitant]
     Dosage: UNK
  5. PREDNISONE [Concomitant]
     Dosage: UNK
  6. VERAPAMIL [Concomitant]
     Dosage: UNK
  7. CYMBALTA [Concomitant]
     Dosage: UNK
  8. DIAZEPAM [Concomitant]
     Dosage: UNK
  9. ADDERALL 10 [Concomitant]
     Dosage: UNK

REACTIONS (1)
  - RASH [None]
